FAERS Safety Report 10196449 (Version 3)
Quarter: 2015Q3

REPORT INFORMATION
  Report Type: Spontaneous
  Country: US (occurrence: US)
  Receive Date: 20140527
  Receipt Date: 20150713
  Transmission Date: 20151125
  Serious: Yes (Hospitalization, Disabling, Other)
  Sender: FDA-Public Use
  Company Number: US-009507513-1405USA011464

PATIENT
  Sex: Female
  Weight: 61.22 kg

DRUGS (3)
  1. FOSAMAX [Suspect]
     Active Substance: ALENDRONATE SODIUM
     Dosage: UNK
     Route: 048
     Dates: start: 199509
  2. FOSAMAX [Suspect]
     Active Substance: ALENDRONATE SODIUM
     Indication: OSTEOPENIA
     Dosage: 70 MG, QW
     Route: 048
     Dates: start: 200105, end: 200606
  3. VITAMINS (UNSPECIFIED) [Concomitant]
     Active Substance: VITAMINS
     Indication: ROUTINE HEALTH MAINTENANCE
     Dosage: UNK, QD
     Dates: start: 1969

REACTIONS (15)
  - Hypothyroidism [Recovered/Resolved]
  - Vulvovaginal discomfort [Recovered/Resolved]
  - Anaemia postoperative [Unknown]
  - Anxiety [Unknown]
  - Breast calcifications [Unknown]
  - Femur fracture [Not Recovered/Not Resolved]
  - Sleep disorder [Unknown]
  - Femur fracture [Not Recovered/Not Resolved]
  - Breast cancer [Unknown]
  - Thyroidectomy [Unknown]
  - Dental implantation [Unknown]
  - Fall [Unknown]
  - Tooth extraction [Unknown]
  - Hyperlipidaemia [Unknown]
  - Osteoporosis [Not Recovered/Not Resolved]

NARRATIVE: CASE EVENT DATE: 19951114
